FAERS Safety Report 9726918 (Version 2)
Quarter: 2013Q4

REPORT INFORMATION
  Report Type: Spontaneous
  Country: FR (occurrence: None)
  Receive Date: 20131129
  Receipt Date: 20131211
  Transmission Date: 20140711
  Serious: Yes (Other)
  Sender: FDA-Public Use
  Company Number: AXC-2013-000615

PATIENT
  Age: 51 Year
  Sex: Female
  Weight: 59 kg

DRUGS (5)
  1. PYLERA [Suspect]
     Indication: HELICOBACTER INFECTION
     Dosage: 3 DF, QID, ORAL
     Route: 048
     Dates: start: 201311, end: 201311
  2. INIPOMP (PANTOPRAZOLE SODIUM SESQUIHYDRATE) UNKNOWN [Concomitant]
  3. TRAMADOL (TRAMADOL) [Concomitant]
  4. LAROXYL (AMITRIPTYLINE HYDROCHLORIDE) [Concomitant]
  5. DEBRIDAT [Concomitant]

REACTIONS (7)
  - Convulsion [None]
  - Headache [None]
  - Musculoskeletal stiffness [None]
  - Nausea [None]
  - Abdominal pain [None]
  - Dysgeusia [None]
  - Tremor [None]
